FAERS Safety Report 10195966 (Version 1)
Quarter: 2014Q2

REPORT INFORMATION
  Report Type: Spontaneous
  Country: US (occurrence: US)
  Receive Date: 20140527
  Receipt Date: 20140527
  Transmission Date: 20141212
  Serious: Yes (Other)
  Sender: FDA-Public Use
  Company Number: PHEH2014US010452

PATIENT
  Sex: Female

DRUGS (2)
  1. FEMARA [Suspect]
     Dosage: UNK UKN, UNK
  2. LETROZOLE [Suspect]
     Dosage: 2.5 MG, UNK

REACTIONS (4)
  - Colorectal cancer [Unknown]
  - Mood swings [Unknown]
  - Dyspepsia [Unknown]
  - Depression [Unknown]
